FAERS Safety Report 7524556-5 (Version None)
Quarter: 2011Q2

REPORT INFORMATION
  Report Type: 
  Country: None (occurrence: None)
  Receive Date: 20110606
  Receipt Date: 20110523
  Transmission Date: 20111010
  Serious: Yes (Hospitalization)
  Sender: FDA-Public Use
  Company Number: JP-JNJFOC-20110506229

PATIENT
  Sex: Female

DRUGS (12)
  1. CALCITRIOL [Concomitant]
     Indication: OSTEOPOROSIS
     Route: 048
  2. KETAS [Concomitant]
     Indication: DEMENTIA
     Route: 048
  3. CHOUTOUSAN [Concomitant]
     Indication: DEMENTIA
     Route: 048
  4. BONALON [Concomitant]
     Indication: OSTEOPOROSIS
     Route: 048
  5. HOKUNALIN [Concomitant]
     Indication: PNEUMONIA
     Route: 062
     Dates: start: 20110402, end: 20110418
  6. COUGHNOL [Concomitant]
     Indication: PNEUMONIA
     Route: 048
     Dates: start: 20110402, end: 20110418
  7. ACETAMINOPHEN [Suspect]
     Indication: PNEUMONIA
     Route: 048
     Dates: start: 20110402, end: 20110418
  8. EPHEDRINE HYDROCHLORIDE [Concomitant]
     Indication: PNEUMONIA
     Route: 048
     Dates: start: 20110402, end: 20110418
  9. ALDIOXA [Concomitant]
     Indication: DEMENTIA
     Route: 048
  10. MUCODYNE [Concomitant]
     Indication: PNEUMONIA
     Dosage: 750 MG
     Route: 048
     Dates: start: 20110402, end: 20110418
  11. LEVOFLOXACIN [Suspect]
     Indication: PNEUMONIA
     Route: 048
     Dates: start: 20110402, end: 20110418
  12. ARICEPT [Concomitant]
     Indication: DEMENTIA
     Route: 048

REACTIONS (2)
  - ALTERED STATE OF CONSCIOUSNESS [None]
  - DRUG LEVEL INCREASED [None]
